FAERS Safety Report 6816612-1 (Version None)
Quarter: 2010Q3

REPORT INFORMATION
  Report Type: 
  Country: None (occurrence: None)
  Receive Date: 20100706
  Receipt Date: 20100630
  Transmission Date: 20110219
  Serious: Yes (Life-Threatening, Hospitalization)
  Sender: FDA-Public Use
  Company Number: US-BAYER-200911406NA

PATIENT
  Age: 40 Year
  Sex: Female
  Weight: 87 kg

DRUGS (21)
  1. ALEMTUZUMAB [Suspect]
     Indication: MULTIPLE SCLEROSIS
     Dosage: TOTAL DAILY DOSE: 24 MG
     Route: 042
     Dates: start: 20090112, end: 20090112
  2. ALEMTUZUMAB [Suspect]
     Route: 042
     Dates: start: 20090119, end: 20090121
  3. ALEMTUZUMAB [Suspect]
     Route: 042
     Dates: start: 20090128, end: 20090128
  4. ALEMTUZUMAB (STUDY DRUG NOT GIVEN) [Suspect]
     Indication: MULTIPLE SCLEROSIS
  5. VICODIN [Concomitant]
  6. FENTANYL [Concomitant]
  7. SYNTHROID [Concomitant]
     Indication: HYPOTHYROIDISM
     Dosage: TOTAL DAILY DOSE: 0.05 MG
     Route: 048
     Dates: start: 19940101
  8. HYDROCHLOROTHIAZIDE [Concomitant]
     Indication: HYPERTENSION
     Route: 048
     Dates: start: 20060101
  9. WARFARIN [Concomitant]
     Indication: PULMONARY EMBOLISM
     Route: 048
     Dates: start: 20020101, end: 20090105
  10. NAMENDA [Concomitant]
     Indication: MEMORY IMPAIRMENT
     Dosage: TOTAL DAILY DOSE: 20 MG
     Route: 048
     Dates: start: 20060101
  11. KLONOPIN [Concomitant]
     Indication: TREMOR
     Dosage: TOTAL DAILY DOSE: 1 MG
     Route: 048
     Dates: start: 20060101
  12. ACETAZOLAMIDE [Concomitant]
     Indication: MASS
     Dosage: TOTAL DAILY DOSE: 750 MG
     Route: 048
     Dates: start: 20070101
  13. BACLOFEN [Concomitant]
     Indication: MUSCLE SPASMS
     Dosage: TOTAL DAILY DOSE: 40 MG
     Route: 048
     Dates: start: 20060101
  14. CYMBALTA [Concomitant]
     Indication: DEPRESSION
     Dosage: TOTAL DAILY DOSE: 60 MG
     Route: 048
     Dates: start: 20050101
  15. ABILIFY [Concomitant]
     Indication: DEPRESSION
     Route: 048
     Dates: start: 20080701
  16. ALBUTEROL [Concomitant]
     Indication: ASTHMA
  17. TORADOL [Concomitant]
     Dates: start: 20090105, end: 20090105
  18. BENADRYL [Concomitant]
     Dates: start: 20090105, end: 20090105
  19. COUMADIN [Concomitant]
     Indication: DEEP VEIN THROMBOSIS
  20. ESTROGEN BIRTH CONTROL [Concomitant]
     Dosage: TOTAL DAILY DOSE: 4 DF
     Dates: start: 20090601, end: 20090601
  21. COPAXONE [Concomitant]

REACTIONS (3)
  - HEADACHE [None]
  - HYSTERECTOMY [None]
  - SUICIDAL IDEATION [None]
